FAERS Safety Report 9540195 (Version 2)
Quarter: 2013Q4

REPORT INFORMATION
  Report Type: Spontaneous
  Country: JP (occurrence: JP)
  Receive Date: 20130920
  Receipt Date: 20131008
  Transmission Date: 20140711
  Serious: No
  Sender: FDA-Public Use
  Company Number: JP-BRISTOL-MYERS SQUIBB COMPANY-19429869

PATIENT
  Sex: Male

DRUGS (1)
  1. ONGLYZA TABS 2.5 MG [Suspect]

REACTIONS (1)
  - Hepatic function abnormal [Unknown]
